FAERS Safety Report 5675478-6 (Version None)
Quarter: 2008Q1

REPORT INFORMATION
  Report Type: 
  Country: None (occurrence: None)
  Receive Date: 20080321
  Receipt Date: 20080312
  Transmission Date: 20080703
  Serious: Yes (Hospitalization, Other)
  Sender: FDA-Public Use
  Company Number: GB-JNJFOC-20080302937

PATIENT
  Sex: Female
  Weight: 76 kg

DRUGS (12)
  1. INFLIXIMAB [Suspect]
     Route: 042
  2. INFLIXIMAB [Suspect]
     Indication: WEGENER'S GRANULOMATOSIS
     Route: 042
  3. METHOTREXATE [Concomitant]
  4. ASPIRIN [Concomitant]
  5. CALCITRIOL [Concomitant]
  6. DIAZEPAM [Concomitant]
  7. FLUOXETINE [Concomitant]
  8. FOLIC ACID [Concomitant]
  9. FOSAMAX [Concomitant]
  10. HRT [Concomitant]
  11. LOSEC I.V. [Concomitant]
  12. PREDNISOLONE [Concomitant]

REACTIONS (1)
  - WEGENER'S GRANULOMATOSIS [None]
